FAERS Safety Report 18316771 (Version 1)
Quarter: 2020Q3

REPORT INFORMATION
  Report Type: Spontaneous
  Country: US (occurrence: US)
  Receive Date: 20200928
  Receipt Date: 20200928
  Transmission Date: 20201103
  Serious: Yes (Other)
  Sender: FDA-Public Use
  Company Number: US-AUROBINDO-AUR-APL-2013-05247

PATIENT
  Age: 70 Year
  Sex: Male

DRUGS (1)
  1. MINOCYCLINE [Suspect]
     Active Substance: MINOCYCLINE HYDROCHLORIDE
     Indication: RHEUMATOID ARTHRITIS
     Dosage: 100 MILLIGRAM, TWO TIMES A DAY
     Route: 048

REACTIONS (2)
  - Skin hyperpigmentation [Recovered/Resolved]
  - Skin discolouration [Recovered/Resolved]
